FAERS Safety Report 11566114 (Version 1)
Quarter: 2015Q3

REPORT INFORMATION
  Report Type: Report from Study
  Country: IN (occurrence: IN)
  Receive Date: 20150929
  Receipt Date: 20150929
  Transmission Date: 20151125
  Serious: Yes (Hospitalization)
  Sender: FDA-Public Use
  Company Number: IN-ROCHE-1638822

PATIENT
  Age: 51 Year
  Sex: Male

DRUGS (16)
  1. LACTULOSE. [Concomitant]
     Active Substance: LACTULOSE
     Route: 048
     Dates: start: 201505, end: 20150924
  2. VALCIVIR [Concomitant]
     Route: 048
     Dates: start: 201505, end: 20150924
  3. PREDNISOLONE. [Concomitant]
     Active Substance: PREDNISOLONE
     Dosage: ONE AND A HALF TABLETS OF 10MG,ONCE A DAY
     Route: 048
     Dates: start: 201505, end: 20150924
  4. TORSEMIDE. [Concomitant]
     Active Substance: TORSEMIDE
     Route: 048
     Dates: start: 201505, end: 20150924
  5. CLONAZEPAM. [Concomitant]
     Active Substance: CLONAZEPAM
     Route: 048
     Dates: start: 201505, end: 20150924
  6. VITAMIN B12 [Concomitant]
     Active Substance: CYANOCOBALAMIN
     Dosage: 1 TSP ORALLY TWO TIMES A DAY
     Route: 048
     Dates: start: 201505, end: 20150924
  7. B-COMPLEX VITAMINS [Concomitant]
     Route: 048
     Dates: start: 201505, end: 20150924
  8. SODIUM BICARBONATE. [Concomitant]
     Active Substance: SODIUM BICARBONATE
     Route: 048
     Dates: start: 201505, end: 20150924
  9. NICARDIA [Concomitant]
     Route: 048
     Dates: start: 201505, end: 20150924
  10. TAMSULOSIN [Concomitant]
     Active Substance: TAMSULOSIN
     Route: 048
     Dates: start: 201505, end: 20150924
  11. CARVEDILOL. [Concomitant]
     Active Substance: CARVEDILOL
     Route: 048
     Dates: start: 201505, end: 20150924
  12. DICLOXACILLIN [Concomitant]
     Active Substance: DICLOXACILLIN
     Route: 048
     Dates: start: 201505, end: 20150924
  13. CELLCEPT [Suspect]
     Active Substance: MYCOPHENOLATE MOFETIL\MYCOPHENOLATE MOFETIL HYDROCHLORIDE
     Indication: RENAL TRANSPLANT
     Dosage: 500MG ORALLY TWO TIMES A DAY
     Route: 048
     Dates: start: 201505, end: 20150924
  14. SULFAMETHOXAZOLE/TRIMETHOPRIM [Concomitant]
     Active Substance: SULFAMETHOXAZOLE\TRIMETHOPRIM
     Route: 048
     Dates: start: 201505, end: 20150924
  15. TORSEMIDE. [Concomitant]
     Active Substance: TORSEMIDE
     Route: 048
     Dates: start: 201505, end: 20150924
  16. TACROLIMUS. [Concomitant]
     Active Substance: TACROLIMUS
     Route: 048
     Dates: start: 201505, end: 20150924

REACTIONS (1)
  - Transplant rejection [Not Recovered/Not Resolved]

NARRATIVE: CASE EVENT DATE: 201505
